FAERS Safety Report 7179246-8 (Version None)
Quarter: 2010Q4

REPORT INFORMATION
  Report Type: 
  Country: None (occurrence: None)
  Receive Date: 20101221
  Receipt Date: 20101216
  Transmission Date: 20110411
  Serious: Yes (Life-Threatening, Hospitalization)
  Sender: FDA-Public Use
  Company Number: FR-ASTELLAS-2010EU006756

PATIENT
  Sex: Male

DRUGS (4)
  1. PROGRAF [Suspect]
     Indication: RENAL TRANSPLANT
     Dosage: 1 DF, BID
     Route: 048
     Dates: start: 20101209, end: 20101212
  2. IMMUNE GLOBULIN NOS [Suspect]
     Dosage: 1 DF, OTHER
     Route: 042
     Dates: start: 20101209, end: 20101210
  3. CELLCEPT [Concomitant]
     Dosage: 1 DF, BID
     Route: 048
     Dates: start: 20101209, end: 20101212
  4. AZANTAC [Concomitant]
     Dosage: 150 MG, UNKNOWN/D
     Route: 048
     Dates: start: 20101209

REACTIONS (1)
  - RENAL VEIN THROMBOSIS [None]
